FAERS Safety Report 4772264-6 (Version None)
Quarter: 2005Q3

REPORT INFORMATION
  Report Type: 
  Country: None (occurrence: None)
  Receive Date: 20050919
  Receipt Date: 20050506
  Transmission Date: 20060218
  Serious: Yes (Other)
  Sender: FDA-Public Use
  Company Number: US-BRISTOL-MYERS SQUIBB COMPANY-12959904

PATIENT
  Age: 74 Year
  Sex: Female

DRUGS (1)
  1. DEFINITY [Suspect]
     Route: 040
     Dates: start: 20050505, end: 20050505

REACTIONS (4)
  - DIZZINESS [None]
  - RESPIRATORY ARREST [None]
  - SWOLLEN TONGUE [None]
  - URTICARIA [None]
